FAERS Safety Report 23641460 (Version 1)
Quarter: 2024Q1

REPORT INFORMATION
  Report Type: Spontaneous
  Country: US (occurrence: US)
  Receive Date: 20240318
  Receipt Date: 20240318
  Transmission Date: 20240410
  Serious: No
  Sender: FDA-Public Use
  Company Number: US-ESPERIONTHERAPEUTICS-2024USA00068

PATIENT
  Age: 77 Year
  Sex: Female
  Weight: 80.726 kg

DRUGS (2)
  1. NEXLETOL [Suspect]
     Active Substance: BEMPEDOIC ACID
     Indication: Blood triglycerides increased
     Dosage: 180 MILLIGRAM, QW
     Route: 065
  2. ALMOTRIPTAN [Concomitant]
     Active Substance: ALMOTRIPTAN
     Indication: Migraine
     Dosage: UNK, PRN
     Route: 065

REACTIONS (5)
  - Cough [Recovered/Resolved]
  - Headache [Unknown]
  - Off label use [Not Recovered/Not Resolved]
  - Bronchitis [Recovered/Resolved]
  - Muscle spasms [Recovering/Resolving]
